FAERS Safety Report 6358079-6 (Version None)
Quarter: 2009Q3

REPORT INFORMATION
  Report Type: 
  Country: None (occurrence: None)
  Receive Date: 20090916
  Receipt Date: 20090908
  Transmission Date: 20100115
  Serious: Yes (Hospitalization)
  Sender: FDA-Public Use
  Company Number: B0592181A

PATIENT
  Sex: Female

DRUGS (6)
  1. CLAMOXYL [Suspect]
     Dosage: 1G TWICE PER DAY
     Route: 048
     Dates: start: 20090604, end: 20090609
  2. CLOMID [Suspect]
     Indication: OVULATION INDUCTION
     Dosage: 100MG PER DAY
     Route: 048
     Dates: start: 20090401
  3. PHYSIOGINE [Suspect]
     Indication: OVULATION INDUCTION
     Dosage: 1MG PER DAY
     Route: 048
     Dates: start: 20090401
  4. DUPHASTON [Suspect]
     Indication: OVULATION INDUCTION
     Dosage: 30MG PER DAY
     Route: 048
     Dates: start: 20090401
  5. ORELOX [Suspect]
     Dosage: 100MG UNKNOWN
     Route: 048
     Dates: start: 20090523, end: 20090527
  6. ANTIBIOTIC UNSPECIFIED [Suspect]
     Route: 065
     Dates: start: 20090101, end: 20090101

REACTIONS (15)
  - ARTHRALGIA [None]
  - BURNING SENSATION [None]
  - CAPILLARY DISORDER [None]
  - ECCHYMOSIS [None]
  - EOSINOPHILIA [None]
  - GAIT DISTURBANCE [None]
  - INFLAMMATION [None]
  - LEUKOCYTOCLASTIC VASCULITIS [None]
  - MOVEMENT DISORDER [None]
  - PAIN [None]
  - PRURITUS [None]
  - PURPURA [None]
  - RAYNAUD'S PHENOMENON [None]
  - SKIN LESION [None]
  - SYSTEMIC LUPUS ERYTHEMATOSUS [None]
